FAERS Safety Report 16809110 (Version 1)
Quarter: 2019Q4

REPORT INFORMATION
  Report Type: Spontaneous
  Country: US (occurrence: US)
  Receive Date: 20190914
  Receipt Date: 20190914
  Transmission Date: 20200122
  Serious: Yes (Disabling)
  Sender: FDA-Public Use
  Company Number: None

PATIENT
  Age: 34 Year
  Sex: Female
  Weight: 54 kg

DRUGS (1)
  1. LUPRON [Suspect]
     Active Substance: LEUPROLIDE ACETATE
     Indication: ENDOMETRIOSIS
     Dosage: ?          OTHER FREQUENCY:ONCE A MONTH FOR 6;?
     Route: 058

REACTIONS (4)
  - Joint swelling [None]
  - Cartilage injury [None]
  - Arthralgia [None]
  - Joint noise [None]

NARRATIVE: CASE EVENT DATE: 20120208
